FAERS Safety Report 19087852 (Version 1)
Quarter: 2021Q2

REPORT INFORMATION
  Report Type: Spontaneous
  Country: US (occurrence: US)
  Receive Date: 20210402
  Receipt Date: 20210402
  Transmission Date: 20210717
  Serious: Yes (Hospitalization)
  Sender: FDA-Public Use
  Company Number: US-TAKEDA-2021TUS021019

PATIENT
  Sex: Male

DRUGS (4)
  1. VELCADE [Suspect]
     Active Substance: BORTEZOMIB
     Indication: PLASMA CELL MYELOMA
     Dosage: 190 MILLIGRAM
     Route: 065
     Dates: start: 2020
  2. REVLIMID [Suspect]
     Active Substance: LENALIDOMIDE
     Indication: PLASMA CELL MYELOMA
     Dosage: 15 MILLIGRAM, QD
     Route: 048
     Dates: start: 20200818
  3. REVLIMID [Suspect]
     Active Substance: LENALIDOMIDE
     Dosage: 15 MILLIGRAM
     Route: 048
     Dates: start: 20200908
  4. REVLIMID [Suspect]
     Active Substance: LENALIDOMIDE
     Dosage: 10 MILLIGRAM, Q3WEEKS
     Route: 048
     Dates: start: 2020

REACTIONS (6)
  - Weight decreased [Unknown]
  - Decreased appetite [Recovered/Resolved]
  - Anaemia [Unknown]
  - Fatigue [Recovered/Resolved]
  - Asthenia [Recovered/Resolved]
  - Adverse drug reaction [Unknown]

NARRATIVE: CASE EVENT DATE: 2020
